FAERS Safety Report 4615270-4 (Version None)
Quarter: 2005Q1

REPORT INFORMATION
  Report Type: 
  Country: None (occurrence: None)
  Receive Date: 20050322
  Receipt Date: 20050228
  Transmission Date: 20050727
  Serious: Yes (Death, Life-Threatening, Hospitalization, Disabling)
  Sender: FDA-Public Use
  Company Number: FI-SANOFI-SYNTHELABO-F01200500346

PATIENT
  Sex: Female

DRUGS (4)
  1. OXALIPLATIN [Suspect]
     Indication: COLORECTAL CANCER METASTATIC
     Route: 042
     Dates: start: 20050209, end: 20050209
  2. FLUOROURACIL [Suspect]
     Dosage: 650 MG BOLUS + INFUSION 2 X 1000MG
     Route: 042
     Dates: start: 20050209, end: 20050210
  3. LEUCOVORIN CALCIUM [Suspect]
     Route: 042
     Dates: start: 20050226, end: 20050226
  4. BEVACIZUMAB OR PLACEBO [Suspect]
     Route: 042
     Dates: start: 20050209, end: 20050209

REACTIONS (4)
  - BRONCHOPNEUMONIA [None]
  - DIARRHOEA [None]
  - ESCHERICHIA BACTERAEMIA [None]
  - FEBRILE NEUTROPENIA [None]
